FAERS Safety Report 4930663-3 (Version None)
Quarter: 2006Q1

REPORT INFORMATION
  Report Type: 
  Country: None (occurrence: None)
  Receive Date: 20060227
  Receipt Date: 20060216
  Transmission Date: 20060701
  Serious: Yes (Hospitalization)
  Sender: FDA-Public Use
  Company Number: TPA2006A00277

PATIENT
  Age: 65 Year
  Sex: Female
  Weight: 75.7507 kg

DRUGS (10)
  1. ACTOS [Suspect]
     Dosage: PER ORAL
     Route: 048
  2. BYETTA [Suspect]
     Indication: DIABETES MELLITUS
     Dosage: SUBCUTANEOUS
     Route: 058
     Dates: start: 20051205, end: 20051228
  3. VYTORIN (INEGY) [Suspect]
     Dates: end: 20051228
  4. AVAPRO [Suspect]
     Dates: end: 20051228
  5. GLUCOPHAGE [Concomitant]
  6. MOTRIN [Concomitant]
  7. AMARYL [Concomitant]
  8. ACETAMINOPHEN [Concomitant]
  9. ALEVE [Concomitant]
  10. STEROID INJECTION (CORTICOSTEROIDS) (INJECTION) [Concomitant]

REACTIONS (11)
  - ADRENAL ADENOMA [None]
  - ARTHRALGIA [None]
  - BLOOD GLUCOSE INCREASED [None]
  - CHEST PAIN [None]
  - CONDITION AGGRAVATED [None]
  - DIABETES MELLITUS INADEQUATE CONTROL [None]
  - DIVERTICULUM [None]
  - HIATUS HERNIA [None]
  - PANCREATITIS ACUTE [None]
  - UMBILICAL HERNIA [None]
  - UTERINE LEIOMYOMA [None]
